FAERS Safety Report 11318345 (Version 1)
Quarter: 2015Q3

REPORT INFORMATION
  Report Type: Spontaneous
  Country: US (occurrence: US)
  Receive Date: 20150728
  Receipt Date: 20150728
  Transmission Date: 20151125
  Serious: Yes (Other)
  Sender: FDA-Public Use
  Company Number: US-LUNDBECK-DKLU2001945

PATIENT
  Age: 32 Year
  Sex: Female

DRUGS (4)
  1. ONFI [Suspect]
     Active Substance: CLOBAZAM
     Route: 065
     Dates: start: 201503
  2. ONFI [Suspect]
     Active Substance: CLOBAZAM
     Indication: PRODUCT USED FOR UNKNOWN INDICATION
     Dosage: TITRATION
     Route: 065
     Dates: start: 201412
  3. ONFI [Suspect]
     Active Substance: CLOBAZAM
     Dosage: AM
     Route: 065
     Dates: start: 20150719
  4. ONFI [Suspect]
     Active Substance: CLOBAZAM
     Dosage: PM
     Route: 065
     Dates: start: 20150719

REACTIONS (1)
  - Seizure [Unknown]

NARRATIVE: CASE EVENT DATE: 20150719
